FAERS Safety Report 7762406-2 (Version None)
Quarter: 2011Q3

REPORT INFORMATION
  Report Type: 
  Country: None (occurrence: None)
  Receive Date: 20110920
  Receipt Date: 20110916
  Transmission Date: 20111222
  Serious: Yes (Hospitalization)
  Sender: FDA-Public Use
  Company Number: CH-ROCHE-803081

PATIENT
  Age: 37 Year
  Sex: Male

DRUGS (1)
  1. METHOXY POLYETHYLENE GLYCOL-EPOETIN BETA [Suspect]
     Route: 058
     Dates: start: 20100701

REACTIONS (3)
  - DEVICE OCCLUSION [None]
  - INGUINAL HERNIA, OBSTRUCTIVE [None]
  - HAEMOGLOBIN DECREASED [None]
